FAERS Safety Report 12249784 (Version 9)
Quarter: 2017Q2

REPORT INFORMATION
  Report Type: Report from Study
  Country: US (occurrence: US)
  Receive Date: 20160408
  Receipt Date: 20170413
  Transmission Date: 20170830
  Serious: Yes (Life-Threatening, Hospitalization, Other)
  Sender: FDA-Public Use
  Company Number: US-ACTELION-A-US2015-129011

PATIENT
  Age: 42 Year
  Sex: Female

DRUGS (21)
  1. VELETRI [Suspect]
     Active Substance: EPOPROSTENOL
     Indication: PULMONARY ARTERIAL HYPERTENSION
     Dosage: 14.5 NG/KG, PER MIN
     Route: 042
     Dates: start: 20151206
  2. PREDNISONE. [Suspect]
     Active Substance: PREDNISONE
     Indication: DRUG REACTION WITH EOSINOPHILIA AND SYSTEMIC SYMPTOMS
     Dosage: 40 MG, QD
     Route: 065
     Dates: start: 201604
  3. ETHACRYNIC ACID. [Suspect]
     Active Substance: ETHACRYNIC ACID
     Dosage: 50 MG, QD
     Route: 065
     Dates: start: 20160216
  4. URSODIOL. [Concomitant]
     Active Substance: URSODIOL
     Dosage: 300 MG, UNK
  5. SPIRONOLACTONE. [Concomitant]
     Active Substance: SPIRONOLACTONE
     Dosage: 25 MG, QD
     Dates: start: 20151214, end: 20160319
  6. RISPERIDONE. [Concomitant]
     Active Substance: RISPERIDONE
     Dosage: 2 MG, QD
     Dates: start: 20140327, end: 20170308
  7. VELETRI [Suspect]
     Active Substance: EPOPROSTENOL
     Dosage: 29.5 NG/KG, PER MIN
     Route: 042
  8. WARFARIN [Concomitant]
     Active Substance: WARFARIN
     Dosage: UNK
     Dates: start: 20151214, end: 20160311
  9. GLIPIZIDE. [Concomitant]
     Active Substance: GLIPIZIDE
     Dosage: 15 MG, BID
     Dates: end: 20160310
  10. TORSEMIDE. [Suspect]
     Active Substance: TORSEMIDE
     Indication: PRODUCT USED FOR UNKNOWN INDICATION
     Route: 065
  11. GABAPENTIN. [Concomitant]
     Active Substance: GABAPENTIN
     Dosage: 300 MG, TID
  12. PREDNISONE. [Suspect]
     Active Substance: PREDNISONE
     Dosage: UNK MG, QD
     Route: 065
  13. DIGOXIN. [Concomitant]
     Active Substance: DIGOXIN
     Dosage: 0.125 MCG, QD
     Route: 048
     Dates: start: 20151214
  14. VELETRI [Suspect]
     Active Substance: EPOPROSTENOL
     Dosage: 22.5 NG/KG, PER MIN
     Route: 042
  15. SILDENAFIL. [Concomitant]
     Active Substance: SILDENAFIL
     Indication: PULMONARY ARTERIAL HYPERTENSION
     Dosage: 20 MG, TID
  16. SPIRONOLACTONE. [Concomitant]
     Active Substance: SPIRONOLACTONE
     Dosage: 50 MG, QD
  17. RISPERIDONE. [Concomitant]
     Active Substance: RISPERIDONE
     Dosage: 12.5 MG, Q2WEEK
     Route: 030
  18. MICROGESTIN [Concomitant]
     Active Substance: ETHINYL ESTRADIOL\NORETHINDRONE ACETATE
     Dosage: 1 TABLET, QD
  19. BUMEX [Concomitant]
     Active Substance: BUMETANIDE
     Dosage: 2 MG, QD
     Dates: end: 20170308
  20. POTASSIUM [Concomitant]
     Active Substance: POTASSIUM
     Dosage: 80 MEQ, BID
  21. ETHACRYNIC ACID. [Suspect]
     Active Substance: ETHACRYNIC ACID
     Indication: PRODUCT USED FOR UNKNOWN INDICATION
     Dosage: 100 MG, QAM
     Route: 065
     Dates: start: 20160216

REACTIONS (30)
  - Dehydration [Unknown]
  - Renal haematoma [Recovering/Resolving]
  - Device related infection [Unknown]
  - Renal haemorrhage [Recovering/Resolving]
  - Nausea [Recovered/Resolved]
  - Vomiting [Recovered/Resolved]
  - Pain in jaw [Unknown]
  - Pneumonia [Recovered/Resolved]
  - Diarrhoea [Recovered/Resolved]
  - Fluid overload [Unknown]
  - Drug reaction with eosinophilia and systemic symptoms [Unknown]
  - Catheter placement [Recovering/Resolving]
  - Sepsis [Recovered/Resolved]
  - Right ventricular failure [Unknown]
  - Acute respiratory distress syndrome [Unknown]
  - Abdominal pain [Recovering/Resolving]
  - Cough [Recovered/Resolved]
  - Blood lactic acid increased [Recovered/Resolved]
  - Hepatic congestion [Unknown]
  - Constipation [Unknown]
  - Headache [Unknown]
  - Rash generalised [Unknown]
  - Incorrect dose administered [Recovered/Resolved]
  - Pulmonary arterial hypertension [Unknown]
  - Vasculitis [Recovering/Resolving]
  - Immunosuppression [Unknown]
  - Flank pain [Recovering/Resolving]
  - Device deployment issue [Recovering/Resolving]
  - Pyrexia [Recovered/Resolved]
  - Lactic acidosis [Recovered/Resolved]

NARRATIVE: CASE EVENT DATE: 20160306
